FAERS Safety Report 25244734 (Version 1)
Quarter: 2025Q2

REPORT INFORMATION
  Report Type: Spontaneous
  Country: US (occurrence: US)
  Receive Date: 20250428
  Receipt Date: 20250428
  Transmission Date: 20250716
  Serious: Yes (Hospitalization, Other)
  Sender: TAKEDA
  Company Number: US-TAKEDA-2025TUS039859

PATIENT
  Sex: Male

DRUGS (5)
  1. ENTYVIO [Suspect]
     Active Substance: VEDOLIZUMAB
     Indication: Colitis ulcerative
  2. FOLIC ACID [Concomitant]
     Active Substance: FOLIC ACID
  3. COREG [Concomitant]
     Active Substance: CARVEDILOL
  4. PREDNISONE [Concomitant]
     Active Substance: PREDNISONE
  5. VITAMIN B [Concomitant]
     Active Substance: VITAMIN B

REACTIONS (2)
  - Syncope [Unknown]
  - Myocardial infarction [Unknown]
